FAERS Safety Report 4552870-4 (Version None)
Quarter: 2005Q1

REPORT INFORMATION
  Report Type: 
  Country: None (occurrence: None)
  Receive Date: 20050114
  Receipt Date: 20041101
  Transmission Date: 20050727
  Serious: Yes (Life-Threatening, Hospitalization, Disabling, Other)
  Sender: FDA-Public Use
  Company Number: US-MERCK-0411USA00117

PATIENT
  Age: 78 Year
  Sex: Male
  Weight: 70 kg

DRUGS (11)
  1. ZOCOR [Suspect]
     Indication: CORONARY ARTERY DISEASE
     Route: 048
  2. ZOCOR [Suspect]
     Route: 048
     Dates: start: 20030801, end: 20040701
  3. ZOCOR [Suspect]
     Route: 048
     Dates: start: 20040701, end: 20040901
  4. ZOCOR [Suspect]
     Route: 048
     Dates: start: 20040901, end: 20041023
  5. ZOCOR [Suspect]
     Indication: HYPERCHOLESTEROLAEMIA
     Route: 048
  6. ZOCOR [Suspect]
     Route: 048
     Dates: start: 20030801, end: 20040701
  7. ZOCOR [Suspect]
     Route: 048
     Dates: start: 20040701, end: 20040901
  8. ZOCOR [Suspect]
     Route: 048
     Dates: start: 20040901, end: 20041023
  9. HYZAAR [Concomitant]
     Route: 048
  10. CARDURA [Concomitant]
     Route: 065
  11. NAPROSYN [Concomitant]
     Route: 065

REACTIONS (12)
  - ATRIAL FIBRILLATION [None]
  - CARDIAC FAILURE CONGESTIVE [None]
  - DIALYSIS [None]
  - HAEMODIALYSIS [None]
  - HEPATIC FAILURE [None]
  - MYOCARDIAL INFARCTION [None]
  - PSEUDOMONAS INFECTION [None]
  - RENAL FAILURE ACUTE [None]
  - RENAL TUBULAR NECROSIS [None]
  - RESPIRATORY FAILURE [None]
  - RHABDOMYOLYSIS [None]
  - URINARY TRACT INFECTION ENTEROCOCCAL [None]
